FAERS Safety Report 20367279 (Version 1)
Quarter: 2022Q1

REPORT INFORMATION
  Report Type: Spontaneous
  Country: IN (occurrence: IN)
  Receive Date: 20220123
  Receipt Date: 20220123
  Transmission Date: 20220423
  Serious: Yes (Other)
  Sender: FDA-Public Use
  Company Number: IN-SUNPHARMA-2022R1-323945AA

PATIENT
  Age: 54 Year
  Sex: Male

DRUGS (7)
  1. TERBINAFINE [Suspect]
     Active Substance: TERBINAFINE
     Indication: Tinea cruris
     Dosage: UNK
     Route: 065
  2. TERBINAFINE [Suspect]
     Active Substance: TERBINAFINE
     Indication: Body tinea
  3. GRISEOFULVIN [Suspect]
     Active Substance: GRISEOFULVIN
     Indication: Body tinea
     Dosage: UNK
     Route: 065
  4. GRISEOFULVIN [Suspect]
     Active Substance: GRISEOFULVIN
     Indication: Tinea cruris
  5. ITRACONAZOLE [Suspect]
     Active Substance: ITRACONAZOLE
     Indication: Body tinea
     Dosage: UNK
     Route: 065
  6. ITRACONAZOLE [Suspect]
     Active Substance: ITRACONAZOLE
     Indication: Tinea cruris
  7. KETOCONAZOLE [Suspect]
     Active Substance: KETOCONAZOLE
     Indication: Antifungal treatment
     Dosage: UNK
     Route: 061

REACTIONS (1)
  - Disease recurrence [Unknown]
